FAERS Safety Report 8487235-6 (Version None)
Quarter: 2012Q3

REPORT INFORMATION
  Report Type: 
  Country: None (occurrence: None)
  Receive Date: 20120705
  Receipt Date: 20120612
  Transmission Date: 20120928
  Serious: Yes (Hospitalization)
  Sender: FDA-Public Use
  Company Number: DK-AMGEN-DNKCT2012041112

PATIENT
  Age: 64 Year
  Sex: Male

DRUGS (5)
  1. REMICADE [Concomitant]
     Indication: RHEUMATOID ARTHRITIS
     Dosage: 300 MG, UNK
     Dates: start: 20100928, end: 20110922
  2. MABTHERA [Concomitant]
     Indication: RHEUMATOID ARTHRITIS
     Dosage: 1000 MG, UNK
     Dates: start: 20110927
  3. METHOTREXATE [Concomitant]
     Indication: RHEUMATOID ARTHRITIS
     Dosage: GIVES STADIG
     Route: 048
     Dates: start: 20070828
  4. ETANERCEPT [Suspect]
     Indication: RHEUMATOID ARTHRITIS
     Dosage: 50 MG, QWK
     Dates: start: 20071120, end: 20100701
  5. PREDNISOLONE [Concomitant]
     Indication: RHEUMATOID ARTHRITIS
     Dosage: GIVES STADIG
     Dates: start: 20071009

REACTIONS (1)
  - GASTRIC CANCER [None]
